FAERS Safety Report 8123312-7 (Version None)
Quarter: 2012Q1

REPORT INFORMATION
  Report Type: 
  Country: None (occurrence: None)
  Receive Date: 20120208
  Receipt Date: 20120130
  Transmission Date: 20120608
  Serious: Yes (Death)
  Sender: FDA-Public Use
  Company Number: US-ROCHE-1033269

PATIENT
  Sex: Male

DRUGS (13)
  1. PREDNISONE [Concomitant]
     Route: 048
     Dates: start: 20101208
  2. SYNTHROID [Concomitant]
     Route: 048
  3. MYCELEX [Concomitant]
     Dates: start: 20110112
  4. RYTHMOL [Concomitant]
  5. VALCYTE [Suspect]
     Indication: PRODUCT USED FOR UNKNOWN INDICATION
  6. MULTI-VITAMIN [Concomitant]
     Route: 048
     Dates: start: 20101215
  7. SEPTRA DS [Concomitant]
     Route: 048
     Dates: start: 20110112
  8. CALCIUM CARBONATE [Concomitant]
     Route: 048
     Dates: start: 20110112
  9. PROTONIX [Concomitant]
     Dates: start: 20110926
  10. LASIX [Concomitant]
  11. METOPROLOL TARTRATE [Concomitant]
     Route: 048
     Dates: start: 20110322
  12. NEORAL [Concomitant]
     Dates: start: 20110930
  13. MAGNESIUM OXIDE [Concomitant]
     Dates: start: 20101208

REACTIONS (2)
  - PNEUMONIA [None]
  - CARDIAC ARREST [None]
